FAERS Safety Report 19661284 (Version 3)
Quarter: 2021Q3

REPORT INFORMATION
  Report Type: Spontaneous
  Country: PL (occurrence: PL)
  Receive Date: 20210805
  Receipt Date: 20210909
  Transmission Date: 20211014
  Serious: Yes (Death, Other)
  Sender: FDA-Public Use
  Company Number: PL-MYLANLABS-2021M1047559

PATIENT
  Age: 54 Year
  Sex: Female

DRUGS (7)
  1. GEMCITABINE. [Suspect]
     Active Substance: GEMCITABINE
     Indication: BREAST CANCER METASTATIC
     Dosage: CYCLICAL
     Route: 065
  2. ZOLEDRONIC ACID. [Concomitant]
     Active Substance: ZOLEDRONIC ACID
     Indication: OSTEOLYSIS
     Dosage: UNK
     Route: 065
  3. PEMBROLIZUMAB. [Suspect]
     Active Substance: PEMBROLIZUMAB
     Indication: BREAST CANCER METASTATIC
     Dosage: 200 MILLIGRAM, DAY 1 OF EACH CYCLE EVERY 21 DAYS
     Route: 065
  4. PEMBROLIZUMAB. [Suspect]
     Active Substance: PEMBROLIZUMAB
     Dosage: 200 MILLIGRAM, CYCLE
     Route: 065
  5. PREDNISONE. [Concomitant]
     Active Substance: PREDNISONE
     Indication: RASH
     Dosage: 10 MILLIGRAM, 14 DAYS
     Route: 065
  6. CAPECITABINE. [Suspect]
     Active Substance: CAPECITABINE
     Indication: PRODUCT USED FOR UNKNOWN INDICATION
     Dosage: 3 CYCLES, STARTED IN APR?2019
     Route: 065
  7. CARBOPLATIN. [Suspect]
     Active Substance: CARBOPLATIN
     Indication: BREAST CANCER METASTATIC
     Dosage: CYCLICAL
     Route: 065

REACTIONS (5)
  - Rash [Recovered/Resolved]
  - Off label use [Unknown]
  - Therapy non-responder [Unknown]
  - Disease progression [Fatal]
  - Malignant neoplasm progression [Unknown]

NARRATIVE: CASE EVENT DATE: 201705
